FAERS Safety Report 24643059 (Version 4)
Quarter: 2024Q4

REPORT INFORMATION
  Report Type: Spontaneous
  Country: US (occurrence: US)
  Receive Date: 20241120
  Receipt Date: 20241209
  Transmission Date: 20250115
  Serious: Yes (Hospitalization)
  Sender: PFIZER
  Company Number: US-PFIZER INC-PV202400148984

PATIENT
  Age: 68 Year
  Sex: Male
  Weight: 102 kg

DRUGS (14)
  1. ELIQUIS [Suspect]
     Active Substance: APIXABAN
     Indication: Atrial fibrillation
     Dosage: 5 MG, 2X/DAY (TAKE 1 TABLET (5 MG) BY MOUTH IN THE MORNING AND AT BEDTIME.)
     Route: 048
     Dates: start: 20240724
  2. VYNDAMAX [Suspect]
     Active Substance: TAFAMIDIS
     Indication: Cardiac failure chronic
     Dosage: TAKE 61 MG BY MOUTH 1 (ONE) TIME EACH DAY
     Route: 048
     Dates: start: 20240916
  3. VYNDAMAX [Suspect]
     Active Substance: TAFAMIDIS
     Indication: Acquired ATTR amyloidosis
     Dosage: TAKE 61 MG BY MOUTH 1 (ONE) TIME EACH DAY
     Route: 048
  4. VYNDAMAX [Suspect]
     Active Substance: TAFAMIDIS
     Indication: Amyloidosis
  5. OMEPRAZOLE [Concomitant]
     Active Substance: OMEPRAZOLE
     Dosage: TAKE 1 TABLET (40 MG) BY MOUTH BEFORE BREAKFAST. DO NOT CRUSH, CHEWOR SPLIT
     Route: 048
  6. LASIX [Concomitant]
     Active Substance: FUROSEMIDE
     Indication: Polyuria
     Dosage: UNK
     Route: 042
  7. TORSEMIDE [Concomitant]
     Active Substance: TORSEMIDE
     Dosage: UNK
  8. ALDACTONE [Concomitant]
     Active Substance: SPIRONOLACTONE
     Dosage: 12.5 MG, 1X/DAY (TAKE 0.5 TABLETS (12.5 MG) BY MOUTH 1 (ONE) TIME EACH DAY)
     Route: 048
  9. JARDIANCE [Concomitant]
     Active Substance: EMPAGLIFLOZIN
     Dosage: UNK
  10. LOSARTAN [Concomitant]
     Active Substance: LOSARTAN
     Dosage: UNK
  11. COREG [Concomitant]
     Active Substance: CARVEDILOL
     Dosage: UNK
  12. AMIODARONE [Concomitant]
     Active Substance: AMIODARONE
     Dosage: UNK
  13. VISTARIL [Concomitant]
     Active Substance: HYDROXYZINE PAMOATE
     Indication: Anxiety
     Dosage: 100 MG, AS NEEDED (TAKE 1 CAPSULE (100 MG) BY MOUTH AT BEDTIME AS NEEDED)
     Route: 048
  14. LYRICA [Concomitant]
     Active Substance: PREGABALIN
     Dosage: 25 MG, 2X/DAY (TAKE 1 CAPSULE (25 MG) BY MOUTH IN THE MORNING AND AT BEDTIME)
     Route: 048

REACTIONS (8)
  - Abdominal pain [Unknown]
  - Diplopia [Unknown]
  - Vision blurred [Unknown]
  - Muscular weakness [Unknown]
  - Flank pain [Unknown]
  - Headache [Unknown]
  - Myalgia [Unknown]
  - Oedema peripheral [Unknown]

NARRATIVE: CASE EVENT DATE: 20241101
